FAERS Safety Report 25883646 (Version 1)
Quarter: 2025Q4

REPORT INFORMATION
  Report Type: Spontaneous
  Country: EU (occurrence: EU)
  Receive Date: 20251006
  Receipt Date: 20251006
  Transmission Date: 20260117
  Serious: Yes (Death)
  Sender: DAIICHI
  Company Number: EU-AstraZeneca-CH-00833954A

PATIENT
  Sex: Female
  Weight: 80 kg

DRUGS (1)
  1. TRASTUZUMAB DERUXTECAN [Suspect]
     Active Substance: TRASTUZUMAB DERUXTECAN
     Indication: Breast cancer metastatic
     Dosage: 93 PERCENT
     Route: 065

REACTIONS (3)
  - Malignant neoplasm progression [Fatal]
  - Therapy change [Unknown]
  - Off label use [Unknown]
